APPROVED DRUG PRODUCT: CARTIA XT
Active Ingredient: DILTIAZEM HYDROCHLORIDE
Strength: 300MG
Dosage Form/Route: CAPSULE, EXTENDED RELEASE;ORAL
Application: A074752 | Product #004 | TE Code: AB3
Applicant: ACTAVIS LABORATORIES FL INC
Approved: Jul 9, 1998 | RLD: No | RS: No | Type: RX